FAERS Safety Report 8238930-5 (Version None)
Quarter: 2012Q1

REPORT INFORMATION
  Report Type: 
  Country: None (occurrence: None)
  Receive Date: 20120327
  Receipt Date: 20120320
  Transmission Date: 20120608
  Serious: Yes (Other)
  Sender: FDA-Public Use
  Company Number: US-ASTRAZENECA-2011SE74397

PATIENT
  Age: 71 Year
  Sex: Male
  Weight: 83 kg

DRUGS (4)
  1. ZOLOST [Concomitant]
     Indication: DEPRESSION
  2. ATENOLOL [Concomitant]
     Indication: HYPERTENSION
  3. DOXETIN [Concomitant]
     Indication: SLEEP DISORDER
  4. CRESTOR [Suspect]
     Indication: BLOOD CHOLESTEROL INCREASED
     Route: 048
     Dates: start: 20101018, end: 20111121

REACTIONS (3)
  - TENDON RUPTURE [None]
  - MUSCLE SWELLING [None]
  - MYALGIA [None]
